FAERS Safety Report 15765735 (Version 1)
Quarter: 2018Q4

REPORT INFORMATION
  Report Type: Spontaneous
  Country: RU (occurrence: RU)
  Receive Date: 20181227
  Receipt Date: 20181227
  Transmission Date: 20190205
  Serious: Yes (Other)
  Sender: FDA-Public Use
  Company Number: RU-BIOGEN-2018BI00675285

PATIENT
  Age: 17 Year

DRUGS (1)
  1. TECFIDERA [Suspect]
     Active Substance: DIMETHYL FUMARATE
     Indication: MULTIPLE SCLEROSIS
     Route: 065

REACTIONS (4)
  - Neutropenia [Unknown]
  - Monocytosis [Unknown]
  - Off label use [Unknown]
  - Lymphocytosis [Unknown]

NARRATIVE: CASE EVENT DATE: 20181217
